FAERS Safety Report 6578299-5 (Version None)
Quarter: 2010Q1

REPORT INFORMATION
  Report Type: 
  Country: None (occurrence: None)
  Receive Date: 20100211
  Receipt Date: 20100208
  Transmission Date: 20100710
  Serious: Yes (Hospitalization, Other)
  Sender: FDA-Public Use
  Company Number: B0631864A

PATIENT
  Sex: Female

DRUGS (2)
  1. AUGMENTIN '125' [Suspect]
     Indication: INFLAMMATION
     Dosage: 1G THREE TIMES PER DAY
     Route: 042
     Dates: start: 20091203, end: 20091204
  2. AUGMENTIN '125' [Suspect]
     Indication: INFLAMMATION
     Dosage: 1G THREE TIMES PER DAY
     Route: 048
     Dates: start: 20091205, end: 20091206

REACTIONS (3)
  - GENERALISED ERYTHEMA [None]
  - PRURITUS [None]
  - RASH ERYTHEMATOUS [None]
